FAERS Safety Report 6407958-X (Version None)
Quarter: 2009Q4

REPORT INFORMATION
  Report Type: 
  Country: None (occurrence: None)
  Receive Date: 20091020
  Receipt Date: 20091013
  Transmission Date: 20100525
  Serious: Yes (Other)
  Sender: FDA-Public Use
  Company Number: GB-JNJCH-2009027018

PATIENT
  Age: 60 Year
  Sex: Male
  Weight: 175 kg

DRUGS (8)
  1. SUDAFED 12 HOUR [Suspect]
     Indication: DRUG USE FOR UNKNOWN INDICATION
     Dosage: TEXT:UNSPECIFIED
     Route: 048
  2. CLOZARIL [Suspect]
     Indication: SCHIZOPHRENIA
     Dosage: TEXT:UNSPECIFIED
     Route: 065
  3. DOMPERIDONE [Concomitant]
     Indication: ABDOMINAL DISCOMFORT
     Dosage: TEXT:UNSPECIFIED
     Route: 048
  4. LANSOPRAZOLE [Concomitant]
     Indication: ABDOMINAL DISCOMFORT
     Dosage: TEXT:UNSPECIFIED
     Route: 048
  5. MELATONIN [Concomitant]
     Indication: SLEEP DISORDER
     Dosage: TEXT:UNSPECIFIED
     Route: 048
  6. NULYTELY [Concomitant]
     Indication: CONSTIPATION
     Dosage: TEXT:UNSPECIFIED
     Route: 048
  7. PARACETAMOL [Concomitant]
     Indication: DRUG USE FOR UNKNOWN INDICATION
     Dosage: TEXT:UNSPECIFIED
     Route: 065
  8. VALPROATE SODIUM [Concomitant]
     Indication: AFFECTIVE DISORDER
     Dosage: TEXT:UNSPECIFIED
     Route: 048

REACTIONS (3)
  - ANTIPSYCHOTIC DRUG LEVEL INCREASED [None]
  - DRUG ABUSE [None]
  - TREATMENT NONCOMPLIANCE [None]
